FAERS Safety Report 4298501-2 (Version None)
Quarter: 2004Q1

REPORT INFORMATION
  Report Type: 
  Country: None (occurrence: None)
  Receive Date: 20040218
  Receipt Date: 20031202
  Transmission Date: 20041129
  Serious: Yes (Other)
  Sender: FDA-Public Use
  Company Number: US-BRISTOL-MYERS SQUIBB COMPANY-12451225

PATIENT
  Age: 38 Year
  Sex: Female

DRUGS (9)
  1. STADOL [Suspect]
     Dates: end: 19970401
  2. STADOL [Suspect]
     Dates: end: 19970401
  3. SOMA [Suspect]
  4. DOXEPIN HCL [Concomitant]
  5. VISTARIL [Concomitant]
  6. RELAFEN [Concomitant]
  7. FIORINAL [Concomitant]
  8. DONNATAL [Concomitant]
  9. LORTAB [Concomitant]

REACTIONS (3)
  - ANXIETY [None]
  - DEPENDENCE [None]
  - STRESS SYMPTOMS [None]
